FAERS Safety Report 4659809-1 (Version None)
Quarter: 2005Q2

REPORT INFORMATION
  Report Type: 
  Country: None (occurrence: None)
  Receive Date: 20050510
  Receipt Date: 20050426
  Transmission Date: 20051028
  Serious: Yes (Death)
  Sender: FDA-Public Use
  Company Number: 214042

PATIENT
  Age: 83 Year
  Sex: Male

DRUGS (5)
  1. RITUXAN [Suspect]
     Dosage: INTRAVENOUS
     Route: 042
     Dates: start: 20040615, end: 20041125
  2. PIRARUBICIN (PIRARUBICIN) [Concomitant]
  3. CYCLOPHOSPHAMIDE [Concomitant]
  4. ONCOVIN [Concomitant]
  5. PREDNISONE [Concomitant]

REACTIONS (2)
  - HEPATIC FAILURE [None]
  - HEPATITIS B [None]
